FAERS Safety Report 19191461 (Version 1)
Quarter: 2021Q2

REPORT INFORMATION
  Report Type: Spontaneous
  Country: JP (occurrence: JP)
  Receive Date: 20210428
  Receipt Date: 20210428
  Transmission Date: 20210717
  Serious: Yes (Other)
  Sender: FDA-Public Use
  Company Number: JP-TAKEDA-2021TUS026051

PATIENT
  Sex: Female
  Weight: 3 kg

DRUGS (1)
  1. 476 (MESALAZINE/MESALAMINE) [Suspect]
     Active Substance: MESALAMINE
     Indication: COLITIS ULCERATIVE
     Dosage: 2000 MILLIGRAM, BID
     Route: 064

REACTIONS (2)
  - Neonatal gastrointestinal haemorrhage [Recovered/Resolved]
  - Foetal exposure during pregnancy [Recovered/Resolved]
